FAERS Safety Report 13550339 (Version 1)
Quarter: 2017Q2

REPORT INFORMATION
  Report Type: Report from Study
  Country: CA (occurrence: CA)
  Receive Date: 20170516
  Receipt Date: 20170516
  Transmission Date: 20170830
  Serious: Yes (Other)
  Sender: FDA-Public Use
  Company Number: CA-AMGEN-CANSL2017070806

PATIENT
  Age: 71 Year
  Sex: Female

DRUGS (2)
  1. MAGNESIUM CALCIUM [Suspect]
     Active Substance: CALCIUM CARBONATE\MAGNESIUM CARBONATE
     Indication: PRODUCT USED FOR UNKNOWN INDICATION
     Route: 065
  2. PROLIA [Suspect]
     Active Substance: DENOSUMAB
     Indication: PRODUCT USED FOR UNKNOWN INDICATION
     Dosage: UNK
     Route: 065
     Dates: start: 20150722

REACTIONS (15)
  - Superficial vein prominence [Unknown]
  - Bone disorder [Unknown]
  - Dry skin [Unknown]
  - Gastrooesophageal reflux disease [Unknown]
  - Pruritus [Unknown]
  - Skin exfoliation [Unknown]
  - Rash [Unknown]
  - Dyspepsia [Unknown]
  - Bone density decreased [Unknown]
  - Skin wrinkling [Not Recovered/Not Resolved]
  - Erythema [Unknown]
  - Colitis ulcerative [Unknown]
  - Skin irritation [Unknown]
  - Vitreous floaters [Recovered/Resolved]
  - Trismus [Unknown]

NARRATIVE: CASE EVENT DATE: 2015
